FAERS Safety Report 18816771 (Version 1)
Quarter: 2021Q1

REPORT INFORMATION
  Report Type: Spontaneous
  Country: US (occurrence: US)
  Receive Date: 20210201
  Receipt Date: 20210201
  Transmission Date: 20210419
  Serious: No
  Sender: FDA-Public Use
  Company Number: US-JNJFOC-20210136499

PATIENT
  Age: 65 Year
  Sex: Male
  Weight: 93.07 kg

DRUGS (1)
  1. MENS ROGAINE EXTRA STRENGTH [Suspect]
     Active Substance: MINOXIDIL
     Indication: ALOPECIA
     Dosage: AMMOUNT INDICATED. TWICE DAILY.
     Route: 061
     Dates: start: 20200815, end: 20210116

REACTIONS (1)
  - Application site acne [Recovering/Resolving]

NARRATIVE: CASE EVENT DATE: 20201221
